FAERS Safety Report 20181621 (Version 1)
Quarter: 2021Q4

REPORT INFORMATION
  Report Type: Spontaneous
  Country: US (occurrence: None)
  Receive Date: 20211214
  Receipt Date: 20211214
  Transmission Date: 20220303
  Serious: Yes (Hospitalization)
  Sender: FDA-Public Use
  Company Number: None

PATIENT
  Age: 63 Year
  Sex: Male
  Weight: 92.4 kg

DRUGS (2)
  1. ACALABRUTINIB [Suspect]
     Active Substance: ACALABRUTINIB
     Dates: end: 20211208
  2. RITUXIMAB [Suspect]
     Active Substance: RITUXIMAB
     Dates: end: 20211124

REACTIONS (5)
  - Erythema [None]
  - Oedema peripheral [None]
  - Dermatitis exfoliative [None]
  - Febrile neutropenia [None]
  - Pneumonia [None]

NARRATIVE: CASE EVENT DATE: 20211203
